FAERS Safety Report 9386603 (Version 3)
Quarter: 2013Q3

REPORT INFORMATION
  Report Type: Report from Study
  Country: DE (occurrence: DE)
  Receive Date: 20130708
  Receipt Date: 20130830
  Transmission Date: 20140515
  Serious: Yes (Death)
  Sender: FDA-Public Use
  Company Number: PHHY2013DE071523

PATIENT
  Sex: Male
  Weight: 100 kg

DRUGS (5)
  1. ICL670A [Suspect]
     Indication: MYELODYSPLASTIC SYNDROME
     Dosage: 4 DF (500 MG) (30MG/KG/DAY), DAILY
     Route: 048
     Dates: start: 20120726, end: 20120810
  2. ICL670A [Suspect]
     Dosage: UNK UKN, UNK
     Route: 048
     Dates: start: 20121031, end: 20130104
  3. PREDNISOLON [Concomitant]
     Dosage: 15 MG, DAILY
     Dates: start: 20120726, end: 20130104
  4. VIDAZA [Concomitant]
     Dosage: 70 MG/M2, EVERY 4 WEEKS/5D
     Dates: start: 20110301
  5. INTRATECT [Concomitant]
     Dosage: 1 G/KG, EVERY 4 WEEKS
     Dates: start: 20121122, end: 20121128

REACTIONS (2)
  - Cardiac failure [Fatal]
  - Drug administration error [Unknown]
